FAERS Safety Report 21526487 (Version 1)
Quarter: 2022Q4

REPORT INFORMATION
  Report Type: Spontaneous
  Country: US (occurrence: US)
  Receive Date: 20221031
  Receipt Date: 20221031
  Transmission Date: 20230112
  Serious: No
  Sender: FDA-Public Use
  Company Number: US-GLAXOSMITHKLINE-USCH2022AMR041012

PATIENT
  Sex: Male

DRUGS (1)
  1. ADVIL LIQUI-GELS [Suspect]
     Active Substance: IBUPROFEN
     Indication: Product used for unknown indication
     Dosage: UNK
     Dates: start: 2022

REACTIONS (1)
  - Drug ineffective [Unknown]

NARRATIVE: CASE EVENT DATE: 20220101
